FAERS Safety Report 20919258 (Version 3)
Quarter: 2022Q3

REPORT INFORMATION
  Report Type: Spontaneous
  Country: US (occurrence: US)
  Receive Date: 20220606
  Receipt Date: 20220708
  Transmission Date: 20221027
  Serious: No
  Sender: FDA-Public Use
  Company Number: US-PFIZER INC-202200784978

PATIENT
  Age: 71 Year
  Sex: Female
  Weight: 52.16 kg

DRUGS (1)
  1. PAXLOVID [Suspect]
     Active Substance: NIRMATRELVIR\RITONAVIR
     Indication: COVID-19 treatment
     Dosage: [PF-07321332 150 MG]/[RITONAVIR 100 MG]; 2X/DAY IN THE MORNING AND AT NIGHT
     Route: 048
     Dates: start: 20220526

REACTIONS (3)
  - Dysgeusia [Unknown]
  - Weight decreased [Unknown]
  - Hot flush [Unknown]

NARRATIVE: CASE EVENT DATE: 20220501
